FAERS Safety Report 17840982 (Version 2)
Quarter: 2020Q2

REPORT INFORMATION
  Report Type: Spontaneous
  Country: GR (occurrence: GR)
  Receive Date: 20200529
  Receipt Date: 20200603
  Transmission Date: 20200714
  Serious: Yes (Hospitalization, Other)
  Sender: FDA-Public Use
  Company Number: GR-OTSUKA-2020_012933

PATIENT
  Age: 13 Month
  Sex: Female

DRUGS (1)
  1. ARIPIPRAZOLE. [Suspect]
     Active Substance: ARIPIPRAZOLE
     Indication: PRODUCT USED FOR UNKNOWN INDICATION
     Dosage: 1 DF, (1X) TOTAL
     Route: 048

REACTIONS (6)
  - Accidental exposure to product by child [Unknown]
  - Stupor [Recovered/Resolved]
  - Pyrexia [Recovered/Resolved]
  - Hyporesponsive to stimuli [Recovered/Resolved]
  - Somnolence [Recovered/Resolved]
  - Toxic encephalopathy [Recovered/Resolved]
